FAERS Safety Report 25549323 (Version 4)
Quarter: 2025Q3

REPORT INFORMATION
  Report Type: Report from Study
  Country: US (occurrence: US)
  Receive Date: 20250714
  Receipt Date: 20250815
  Transmission Date: 20251021
  Serious: Yes (Hospitalization)
  Sender: MALLINCKRODT
  Company Number: US-MALLINCKRODT-MNK202504130

PATIENT
  Age: 82 Year
  Sex: Male

DRUGS (1)
  1. CORTICOTROPIN [Suspect]
     Active Substance: CORTICOTROPIN
     Indication: Keratitis
     Route: 058
     Dates: start: 20250613, end: 20250701

REACTIONS (7)
  - Hospitalisation [Not Recovered/Not Resolved]
  - Erythema [Unknown]
  - Pain [Unknown]
  - Peripheral swelling [Recovering/Resolving]
  - Blood pressure increased [Unknown]
  - Therapy cessation [Unknown]
  - Drug ineffective [Unknown]

NARRATIVE: CASE EVENT DATE: 20250101
